FAERS Safety Report 11690389 (Version 5)
Quarter: 2015Q4

REPORT INFORMATION
  Report Type: Spontaneous
  Country: US (occurrence: US)
  Receive Date: 20151102
  Receipt Date: 20151228
  Transmission Date: 20160304
  Serious: Yes (Hospitalization, Other)
  Sender: FDA-Public Use
  Company Number: US-ACTELION PHARMACEUTICALS US, INC.-A-US2014-103319

PATIENT
  Age: 46 Year
  Sex: Female

DRUGS (4)
  1. TREPROSTINIL DIOLAMIN [Concomitant]
     Active Substance: TREPROSTINIL DIOLAMINE
  2. ADCIRCA [Concomitant]
     Active Substance: TADALAFIL
  3. TYVASO [Suspect]
     Active Substance: TREPROSTINIL
     Indication: PRODUCT USED FOR UNKNOWN INDICATION
     Dosage: 6 PUFF, QID
     Route: 055
  4. TRACLEER [Suspect]
     Active Substance: BOSENTAN
     Indication: PULMONARY HYPERTENSION
     Dosage: UNK
     Route: 048

REACTIONS (9)
  - Lung disorder [Unknown]
  - Irritable bowel syndrome [Unknown]
  - Nausea [Unknown]
  - No therapeutic response [Unknown]
  - Cough [Unknown]
  - Oesophageal pain [Unknown]
  - Diarrhoea [Unknown]
  - Lung transplant [Unknown]
  - Insomnia [Unknown]
